FAERS Safety Report 7711582-6 (Version None)
Quarter: 2011Q3

REPORT INFORMATION
  Report Type: 
  Country: None (occurrence: None)
  Receive Date: 20110826
  Receipt Date: 20110608
  Transmission Date: 20111222
  Serious: No
  Sender: FDA-Public Use
  Company Number: US-BRISTOL-MYERS SQUIBB COMPANY-15556194

PATIENT
  Age: 84 Year
  Sex: Male

DRUGS (10)
  1. LOPRESSOR [Concomitant]
  2. SYNTHROID [Concomitant]
  3. HYTRIN [Concomitant]
  4. ZOCOR [Concomitant]
  5. PLAVIX [Concomitant]
  6. AVODART [Concomitant]
  7. ONGLYZA [Suspect]
     Indication: TYPE 2 DIABETES MELLITUS
     Dosage: STARTED 3 WEEKS AGO
  8. PROTONIX [Concomitant]
  9. NIASPAN [Concomitant]
  10. COZAAR [Concomitant]

REACTIONS (1)
  - BLOOD GLUCOSE INCREASED [None]
